FAERS Safety Report 20846091 (Version 6)
Quarter: 2024Q4

REPORT INFORMATION
  Report Type: Report from Study
  Country: MX (occurrence: MX)
  Receive Date: 20220518
  Receipt Date: 20241104
  Transmission Date: 20250114
  Serious: Yes (Hospitalization, Other)
  Sender: NOVARTIS
  Company Number: MX-NOVARTISPH-NVSC2022MX114203

PATIENT
  Sex: Female
  Weight: 47 kg

DRUGS (5)
  1. TASIGNA [Suspect]
     Active Substance: NILOTINIB
     Indication: Chronic myeloid leukaemia
     Dosage: UNK UNK, QD
     Route: 048
  2. TASIGNA [Suspect]
     Active Substance: NILOTINIB
     Dosage: 2 DOSAGE FORM, BID (IN THE MORNING AND AT NIGHT /TWICE DAILY)
     Route: 048
  3. TASIGNA [Suspect]
     Active Substance: NILOTINIB
     Dosage: 200 MG, Q12H (2 TABS EVERY 12 HOURS)
     Route: 048
  4. TASIGNA [Suspect]
     Active Substance: NILOTINIB
     Dosage: 4 DOSAGE FORM, QD
     Route: 048
  5. TASIGNA [Suspect]
     Active Substance: NILOTINIB
     Dosage: 2 DOSAGE FORM (200MG), Q12H
     Route: 048

REACTIONS (21)
  - Gait inability [Recovered/Resolved]
  - Illness [Unknown]
  - Haemoglobin decreased [Recovered/Resolved]
  - Dyspnoea [Recovered/Resolved]
  - Fatigue [Recovered/Resolved]
  - Diabetes mellitus [Not Recovered/Not Resolved]
  - Acute oesophageal mucosal lesion [Recovering/Resolving]
  - Gastritis erosive [Not Recovered/Not Resolved]
  - Oesophageal haemorrhage [Recovering/Resolving]
  - Haematochezia [Recovering/Resolving]
  - Disturbance in attention [Not Recovered/Not Resolved]
  - Polyp [Recovered/Resolved]
  - Diarrhoea [Recovered/Resolved]
  - Haemoglobin decreased [Recovering/Resolving]
  - Limb injury [Not Recovered/Not Resolved]
  - Agitation [Unknown]
  - Pain in extremity [Not Recovered/Not Resolved]
  - Haemorrhage [Recovered/Resolved]
  - Vomiting [Recovered/Resolved]
  - Eating disorder [Unknown]
  - Off label use [Unknown]

NARRATIVE: CASE EVENT DATE: 20200101
